FAERS Safety Report 4474352-0 (Version None)
Quarter: 2004Q4

REPORT INFORMATION
  Report Type: 
  Country: None (occurrence: None)
  Receive Date: 20041014
  Receipt Date: 20041005
  Transmission Date: 20050328
  Serious: Yes (Hospitalization)
  Sender: FDA-Public Use
  Company Number: JP-MERCK-0410USA01550

PATIENT
  Age: 19 Year
  Sex: Male

DRUGS (8)
  1. IMURAN [Suspect]
     Indication: HAEMATURIA
     Route: 048
     Dates: start: 20040907, end: 20040927
  2. IMURAN [Suspect]
     Indication: PROTEINURIA
     Route: 048
     Dates: start: 20040907, end: 20040927
  3. PERSANTIN INJ [Concomitant]
     Route: 048
     Dates: start: 20040907
  4. PEPCID [Suspect]
     Route: 048
     Dates: start: 20040907, end: 20040927
  5. PREDNISOLONE [Concomitant]
     Route: 048
     Dates: start: 20040907, end: 20040927
  6. PREDNISOLONE [Concomitant]
     Route: 048
     Dates: start: 20040928
  7. WARFARIN POTASSIUM [Concomitant]
     Route: 048
     Dates: start: 20040907, end: 20040913
  8. WARFARIN POTASSIUM [Concomitant]
     Route: 048
     Dates: start: 20040914

REACTIONS (4)
  - HAEMOGLOBIN DECREASED [None]
  - NEUTROPHIL COUNT DECREASED [None]
  - PLATELET COUNT DECREASED [None]
  - WHITE BLOOD CELL COUNT DECREASED [None]
